FAERS Safety Report 5402237-1 (Version None)
Quarter: 2007Q3

REPORT INFORMATION
  Report Type: 
  Country: None (occurrence: None)
  Receive Date: 20070727
  Receipt Date: 20061109
  Transmission Date: 20080115
  Serious: Yes (Hospitalization)
  Sender: FDA-Public Use
  Company Number: THYM-11160

PATIENT
  Age: 58 Year
  Sex: Male
  Weight: 75 kg

DRUGS (7)
  1. THYMOGLOBULIN [Suspect]
     Indication: RENAL TRANSPLANT
     Dosage: 110 MG ONCE; IV
     Route: 011
     Dates: start: 20060616, end: 20060616
  2. THYMOGLOBULIN [Suspect]
     Indication: RENAL TRANSPLANT
     Dosage: 55 MG QD; IV
     Route: 042
     Dates: start: 20060617, end: 20060622
  3. PROGRAF [Concomitant]
  4. CELLCEPT [Concomitant]
  5. BACTRIM DS [Concomitant]
  6. VORICONAZOLE [Concomitant]
  7. HERBAL MEDICATION (UNSPECIFIED) [Concomitant]

REACTIONS (2)
  - GRANULOMATOUS LIVER DISEASE [None]
  - HEPATITIS [None]
